FAERS Safety Report 5909821-7 (Version None)
Quarter: 2008Q4

REPORT INFORMATION
  Report Type: 
  Country: None (occurrence: None)
  Receive Date: 20081007
  Receipt Date: 20081002
  Transmission Date: 20090506
  Serious: Yes (Other)
  Sender: FDA-Public Use
  Company Number: JP-BRISTOL-MYERS SQUIBB COMPANY-14356687

PATIENT
  Age: 39 Year
  Sex: Female

DRUGS (3)
  1. AMPICILLIN [Suspect]
     Dosage: 1 DOSAGE FORM = 4000-8000MG
  2. PHENYTOIN [Suspect]
  3. FUROSEMIDE [Suspect]
     Dosage: 1 DOSAGE FORM= 20-40MG

REACTIONS (1)
  - STEVENS-JOHNSON SYNDROME [None]
